FAERS Safety Report 12782120 (Version 1)
Quarter: 2016Q3

REPORT INFORMATION
  Report Type: Spontaneous
  Country: US (occurrence: US)
  Receive Date: 20160923
  Receipt Date: 20160923
  Transmission Date: 20161109
  Serious: Yes (Other)
  Sender: FDA-Public Use
  Company Number: None

PATIENT
  Age: 84 Year
  Sex: Female

DRUGS (1)
  1. TRIAMCINOLONE ACETONIDE USP [Suspect]
     Active Substance: TRIAMCINOLONE ACETONIDE
     Dosage: TRIAMCINOLONE ACETONIDE - DOSE FTU - QD - TOPICAL
     Route: 061
     Dates: start: 20160712, end: 20160713

REACTIONS (3)
  - Chemical injury [None]
  - Rash [None]
  - Dermatitis [None]

NARRATIVE: CASE EVENT DATE: 20160713
